FAERS Safety Report 7516669-9 (Version None)
Quarter: 2011Q2

REPORT INFORMATION
  Report Type: 
  Country: None (occurrence: None)
  Receive Date: 20110523
  Receipt Date: 20110517
  Transmission Date: 20111010
  Serious: Yes (Hospitalization)
  Sender: FDA-Public Use
  Company Number: JPI-P-015095

PATIENT
  Age: 56 Year
  Sex: Female

DRUGS (1)
  1. XYREM [Suspect]
     Indication: NARCOLEPSY
     Dosage: 1 IN 1 D, ORAL
     Route: 048
     Dates: start: 20110420, end: 20110420

REACTIONS (2)
  - CONDITION AGGRAVATED [None]
  - CARDIAC FAILURE CONGESTIVE [None]
